FAERS Safety Report 16574174 (Version 1)
Quarter: 2019Q3

REPORT INFORMATION
  Report Type: Spontaneous
  Country: US (occurrence: US)
  Receive Date: 20190715
  Receipt Date: 20190715
  Transmission Date: 20191004
  Serious: Yes (Other)
  Sender: FDA-Public Use
  Company Number: US-NOVOPROD-660789

PATIENT
  Age: 70 Year
  Sex: Male

DRUGS (1)
  1. OZEMPIC [Suspect]
     Active Substance: SEMAGLUTIDE
     Indication: DIABETES MELLITUS
     Dosage: 0.5 MG
     Route: 058
     Dates: start: 201903, end: 20190420

REACTIONS (5)
  - Diarrhoea [Recovered/Resolved]
  - Abdominal discomfort [Recovered/Resolved]
  - Condition aggravated [Not Recovered/Not Resolved]
  - Eye pain [Unknown]
  - Diabetic retinopathy [Not Recovered/Not Resolved]

NARRATIVE: CASE EVENT DATE: 2019
